FAERS Safety Report 15868352 (Version 1)
Quarter: 2019Q1

REPORT INFORMATION
  Report Type: Spontaneous
  Country: CN (occurrence: CN)
  Receive Date: 20190125
  Receipt Date: 20190125
  Transmission Date: 20190417
  Serious: Yes (Other)
  Sender: FDA-Public Use
  Company Number: CN-BAYER-2019-005709

PATIENT
  Age: 66 Year

DRUGS (2)
  1. STIVARGA [Suspect]
     Active Substance: REGORAFENIB
     Indication: COLORECTAL CANCER STAGE IV
     Dosage: LOWER DOSE
     Route: 048
  2. STIVARGA [Suspect]
     Active Substance: REGORAFENIB
     Indication: COLORECTAL CANCER STAGE IV
     Dosage: 120 MG, QD
     Route: 048
     Dates: start: 20181206

REACTIONS (4)
  - Blood bilirubin increased [Recovered/Resolved]
  - Ascites [None]
  - Off label use [None]
  - Blood bilirubin increased [None]

NARRATIVE: CASE EVENT DATE: 20181206
